FAERS Safety Report 7564851-7 (Version None)
Quarter: 2011Q2

REPORT INFORMATION
  Report Type: 
  Country: None (occurrence: None)
  Receive Date: 20110622
  Receipt Date: 20110304
  Transmission Date: 20111010
  Serious: Yes (Other)
  Sender: FDA-Public Use
  Company Number: US-MYLANLABS-2011S1000282

PATIENT
  Age: 52 Year
  Sex: Male

DRUGS (9)
  1. DEPAKOTE ER [Concomitant]
  2. SODIUM CHLORIDE [Concomitant]
  3. NASONEX [Concomitant]
     Route: 045
  4. CLOZAPINE [Suspect]
     Indication: SCHIZOPHRENIA
     Route: 048
     Dates: end: 20110101
  5. DEPAKOTE ER [Concomitant]
  6. OSCAL 500 + D [Concomitant]
  7. CLOZAPINE [Suspect]
     Route: 048
     Dates: end: 20110101
  8. MIRALAX [Concomitant]
  9. COGENTIN [Concomitant]

REACTIONS (1)
  - GRANULOCYTOPENIA [None]
